FAERS Safety Report 16435287 (Version 1)
Quarter: 2019Q2

REPORT INFORMATION
  Report Type: Spontaneous
  Country: JP (occurrence: JP)
  Receive Date: 20190614
  Receipt Date: 20190614
  Transmission Date: 20190711
  Serious: Yes (Hospitalization, Other)
  Sender: FDA-Public Use
  Company Number: JP-BRISTOL-MYERS SQUIBB COMPANY-BMS-2019-050943

PATIENT
  Age: 9 Decade
  Sex: Male

DRUGS (1)
  1. OPDIVO [Suspect]
     Active Substance: NIVOLUMAB
     Indication: GASTRIC CANCER
     Dosage: 3 MILLIGRAM/KILOGRAM X  10 COURSES
     Route: 041
     Dates: start: 201801

REACTIONS (2)
  - Hypophysitis [Recovered/Resolved]
  - Hypothalamo-pituitary disorder [Recovering/Resolving]

NARRATIVE: CASE EVENT DATE: 20190226
